FAERS Safety Report 4274274-4 (Version None)
Quarter: 2004Q1

REPORT INFORMATION
  Report Type: 
  Country: None (occurrence: None)
  Receive Date: 20040115
  Receipt Date: 20040102
  Transmission Date: 20041129
  Serious: Yes (Death)
  Sender: FDA-Public Use
  Company Number: 2003-06513

PATIENT
  Age: 50 Year
  Sex: Male

DRUGS (3)
  1. ADEFOVIR DIPIVOXIL KIT [Suspect]
     Indication: HEPATITIS B
     Dosage: 5 MG QD PO
     Dates: start: 20031212, end: 20031219
  2. ADEFOVIR DIPIVOXIL KIT [Suspect]
     Indication: HEPATITIS B
     Dosage: 10 MG QD PO
     Dates: start: 20031114, end: 20031211
  3. LAMIVUDINE [Concomitant]

REACTIONS (8)
  - ALANINE AMINOTRANSFERASE INCREASED [None]
  - ASCITES [None]
  - ASPARTATE AMINOTRANSFERASE INCREASED [None]
  - BLOOD BILIRUBIN INCREASED [None]
  - BLOOD PHOSPHORUS INCREASED [None]
  - JAUNDICE [None]
  - RENAL FAILURE ACUTE [None]
  - RENAL IMPAIRMENT [None]
